FAERS Safety Report 14321016 (Version 1)
Quarter: 2017Q4

REPORT INFORMATION
  Report Type: Spontaneous
  Country: GB (occurrence: GB)
  Receive Date: 20171223
  Receipt Date: 20171223
  Transmission Date: 20180321
  Serious: Yes (Other)
  Sender: FDA-Public Use
  Company Number: GB-BION-006834

PATIENT
  Age: 50 Year
  Sex: Male

DRUGS (1)
  1. ETHOSUXIMIDE. [Suspect]
     Active Substance: ETHOSUXIMIDE
     Indication: EPILEPSY

REACTIONS (3)
  - Hallucination, visual [Unknown]
  - Hallucination, olfactory [Unknown]
  - Psychotic disorder [Recovered/Resolved]
